FAERS Safety Report 8536266-6 (Version None)
Quarter: 2012Q3

REPORT INFORMATION
  Report Type: 
  Country: None (occurrence: None)
  Receive Date: 20120725
  Receipt Date: 20120718
  Transmission Date: 20120928
  Serious: Yes (Hospitalization)
  Sender: FDA-Public Use
  Company Number: FR-SANOFI-AVENTIS-2012SA050902

PATIENT
  Age: 56 Year
  Sex: Female

DRUGS (11)
  1. DIPRIVAN [Concomitant]
     Dates: start: 20120607, end: 20120609
  2. PROPOFOL [Concomitant]
     Dates: start: 20120605, end: 20120607
  3. ATORVASTATIN [Concomitant]
     Dates: start: 20120606, end: 20120609
  4. DEPAKENE [Concomitant]
     Indication: EPILEPSY
     Route: 048
  5. NEXIUM [Concomitant]
     Dates: start: 20120605, end: 20120609
  6. LOVENOX [Suspect]
     Indication: THROMBOSIS PROPHYLAXIS
     Route: 058
     Dates: start: 20120606, end: 20120612
  7. NICARDIPINE HCL [Suspect]
     Route: 048
     Dates: start: 20120606, end: 20120612
  8. ACETAMINOPHEN [Suspect]
     Indication: PAIN
     Route: 048
     Dates: start: 20120606, end: 20120612
  9. KEPPRA [Suspect]
     Indication: EPILEPSY
     Route: 048
     Dates: start: 20120605, end: 20120612
  10. TRAMADOL HYDROCHLORIDE [Concomitant]
     Dates: start: 20120606, end: 20120609
  11. LANSOPRAZOLE [Concomitant]
     Dates: start: 20120607, end: 20120609

REACTIONS (1)
  - CYTOLYTIC HEPATITIS [None]
